FAERS Safety Report 24322527 (Version 1)
Quarter: 2024Q3

REPORT INFORMATION
  Report Type: Spontaneous
  Country: PL (occurrence: PL)
  Receive Date: 20240916
  Receipt Date: 20240916
  Transmission Date: 20241017
  Serious: Yes (Hospitalization, Other)
  Sender: ACCORD
  Company Number: PL-EMA-20150323-AUTODUP-431175

PATIENT
  Age: 65 Year
  Sex: Female

DRUGS (2)
  1. MYCOPHENOLATE MOFETIL [Suspect]
     Active Substance: MYCOPHENOLATE MOFETIL
     Indication: Renal transplant
  2. CYCLOSPORINE [Suspect]
     Active Substance: CYCLOSPORINE
     Indication: Renal transplant

REACTIONS (8)
  - Immunosuppressant drug level increased [Recovering/Resolving]
  - Complications of transplanted kidney [Unknown]
  - Hyperoxaluria [Unknown]
  - Blood creatinine increased [Unknown]
  - Renal tubular necrosis [Not Recovered/Not Resolved]
  - Urinary tract infection [Unknown]
  - Escherichia infection [Unknown]
  - Nephrolithiasis [Unknown]
